FAERS Safety Report 8029835-3 (Version None)
Quarter: 2012Q1

REPORT INFORMATION
  Report Type: 
  Country: None (occurrence: None)
  Receive Date: 20120106
  Receipt Date: 20120106
  Transmission Date: 20120608
  Serious: Yes (Other)
  Sender: FDA-Public Use
  Company Number: None

PATIENT
  Age: 60 Year
  Sex: Female

DRUGS (1)
  1. LIPITOR [Suspect]
     Dates: start: 20100625, end: 20100811

REACTIONS (6)
  - PRURITUS [None]
  - HEPATITIS ACUTE [None]
  - VOMITING [None]
  - DECREASED APPETITE [None]
  - HEADACHE [None]
  - NAUSEA [None]
